FAERS Safety Report 10013368 (Version 1)
Quarter: 2014Q1

REPORT INFORMATION
  Report Type: Spontaneous
  Country: US (occurrence: US)
  Receive Date: 20140314
  Receipt Date: 20140314
  Transmission Date: 20141002
  Serious: Yes (Hospitalization, Other)
  Sender: FDA-Public Use
  Company Number: US-B.I. PHARMACEUTICALS,INC./RIDGEFIELD-2014-BI-10648BP

PATIENT
  Sex: Male
  Weight: 80 kg

DRUGS (5)
  1. SPIRIVA [Suspect]
     Indication: EMPHYSEMA
     Dosage: 18 MCG
     Route: 055
     Dates: start: 2010
  2. AMLODIPINE [Concomitant]
     Indication: HYPERTENSION
     Dosage: 5 MG
     Route: 048
  3. DESIPRAMINE [Concomitant]
     Indication: ANXIETY
     Dosage: 25 MG
     Route: 048
  4. CITALOPRAM [Concomitant]
     Indication: ANXIETY
     Dosage: 10 MG
     Route: 048
  5. VENLAFAXINE ER [Concomitant]
     Indication: ANXIETY
     Dosage: 10 MG
     Route: 048

REACTIONS (4)
  - Prostate cancer [Not Recovered/Not Resolved]
  - Cataract [Recovered/Resolved]
  - Cataract [Recovered/Resolved]
  - Vision blurred [Not Recovered/Not Resolved]
